FAERS Safety Report 9732112 (Version 1)
Quarter: 2013Q4

REPORT INFORMATION
  Report Type: Spontaneous
  Country: US (occurrence: US)
  Receive Date: 20131205
  Receipt Date: 20131205
  Transmission Date: 20140711
  Serious: Yes (Hospitalization)
  Sender: FDA-Public Use
  Company Number: US-BAYER-2013-146865

PATIENT
  Age: 69 Year
  Sex: Male
  Weight: 118 kg

DRUGS (4)
  1. XARELTO [Suspect]
     Indication: DEEP VEIN THROMBOSIS
     Dosage: 15 MG, QD
     Route: 048
  2. XARELTO [Interacting]
     Indication: EMBOLISM VENOUS
  3. ACETYLSALICYLIC ACID({=100 MG) [Interacting]
     Indication: PRODUCT USED FOR UNKNOWN INDICATION
     Dosage: 81 MG, UNK
     Route: 065
  4. CLOPIDOGREL [Suspect]
     Indication: PRODUCT USED FOR UNKNOWN INDICATION
     Dosage: 75 MG, UNK
     Route: 065

REACTIONS (4)
  - Faeces discoloured [Recovered/Resolved]
  - Occult blood positive [Recovered/Resolved]
  - Haemoglobin decreased [Unknown]
  - Drug prescribing error [Unknown]
